FAERS Safety Report 9303511 (Version 4)
Quarter: 2014Q2

REPORT INFORMATION
  Report Type: Report from Study
  Country: CZ (occurrence: CZ)
  Receive Date: 20130522
  Receipt Date: 20140610
  Transmission Date: 20141212
  Serious: Yes (Death, Hospitalization)
  Sender: FDA-Public Use
  Company Number: CZ-ROCHE-1160985

PATIENT
  Age: 65 Year
  Sex: Female
  Weight: 72 kg

DRUGS (11)
  1. TRASTUZUMAB EMTANSINE [Suspect]
     Indication: BREAST CANCER
     Dosage: DATE OF LAST DOSE PRIOR TO SAE: 02/NOV/2012, DOSE OF LAST T-DM1 TAKEN: 222 MG
     Route: 042
     Dates: start: 20110620
  2. BLINDED PERTUZUMAB [Suspect]
     Indication: BREAST CANCER
     Dosage: DATE OF LAST DOSE PRIOR TO SAE: 02/NOV/2012
     Route: 042
     Dates: start: 20110620
  3. BETAXA [Concomitant]
     Indication: HYPERTENSION
     Route: 065
     Dates: start: 1990
  4. LORISTA [Concomitant]
     Indication: HYPERTENSION
     Route: 065
     Dates: start: 1990
  5. LOMIR [Concomitant]
     Indication: HYPERTENSION
     Route: 065
     Dates: start: 1990
  6. DIAPREL [Concomitant]
     Indication: DIABETES MELLITUS
     Route: 065
     Dates: start: 200812
  7. ANOPYRIN [Concomitant]
     Indication: MYOCARDIAL ISCHAEMIA
     Route: 065
     Dates: start: 2005
  8. PREDNISONE [Concomitant]
     Indication: PNEUMONITIS
     Route: 065
     Dates: start: 20111214
  9. GENSI [Concomitant]
     Indication: HYPERLIPIDAEMIA
     Route: 065
     Dates: start: 201006
  10. DITHIADEN [Concomitant]
     Route: 065
     Dates: start: 20110621, end: 20121102
  11. KYTRIL [Concomitant]

REACTIONS (1)
  - Pneumonia [Fatal]
